FAERS Safety Report 9797678 (Version 2)
Quarter: 2014Q1

REPORT INFORMATION
  Report Type: Spontaneous
  Country: US (occurrence: US)
  Receive Date: 20140106
  Receipt Date: 20140217
  Transmission Date: 20141002
  Serious: No
  Sender: FDA-Public Use
  Company Number: US-PFIZER INC-2014002436

PATIENT
  Age: 7 Year
  Sex: Female

DRUGS (2)
  1. QUILLIVANT XR [Suspect]
     Indication: ATTENTION DEFICIT/HYPERACTIVITY DISORDER
     Dosage: 4 ML, 1X/DAY
     Route: 048
     Dates: start: 201307, end: 2013
  2. QUILLIVANT XR [Suspect]
     Dosage: (25 MG/5 ML) 3 ML, 1X/DAY
     Route: 048
     Dates: start: 20131220, end: 20140104

REACTIONS (4)
  - Nausea [Recovered/Resolved]
  - Abnormal behaviour [Not Recovered/Not Resolved]
  - Product quality issue [Unknown]
  - Vomiting [Recovered/Resolved]
